FAERS Safety Report 9051013 (Version 1)
Quarter: 2013Q1

REPORT INFORMATION
  Report Type: Spontaneous
  Country: IT (occurrence: IT)
  Receive Date: 20130205
  Receipt Date: 20130205
  Transmission Date: 20140127
  Serious: Yes (Other)
  Sender: FDA-Public Use
  Company Number: IT-PFIZER INC-2013046921

PATIENT
  Age: 73 Year
  Sex: Female

DRUGS (1)
  1. XANAX [Suspect]
     Indication: ANXIETY
     Dosage: 0.25 MG DAILY
     Route: 048
     Dates: start: 20130101, end: 20130101

REACTIONS (2)
  - Confusional state [Recovering/Resolving]
  - Dyssomnia [Recovering/Resolving]
